FAERS Safety Report 4334009-3 (Version None)
Quarter: 2004Q2

REPORT INFORMATION
  Report Type: 
  Country: None (occurrence: None)
  Receive Date: 20040402
  Receipt Date: 20040325
  Transmission Date: 20050107
  Serious: Yes (Hospitalization)
  Sender: FDA-Public Use
  Company Number: 2003187418DE

PATIENT
  Age: 61 Year
  Sex: Female

DRUGS (3)
  1. GENOTROPIN [Suspect]
     Indication: HYPOPITUITARISM
     Dosage: 0.2 MG, QD, UNK
     Dates: start: 20010423, end: 20021128
  2. HEXAL (HEXACHLOROPHENE) [Concomitant]
  3. UNIMAX [Concomitant]

REACTIONS (2)
  - ACTH-PRODUCING PITUITARY TUMOUR [None]
  - NEOPLASM RECURRENCE [None]
